FAERS Safety Report 4582155-1 (Version None)
Quarter: 2005Q1

REPORT INFORMATION
  Report Type: 
  Country: None (occurrence: None)
  Receive Date: 20050119
  Receipt Date: 20040218
  Transmission Date: 20050727
  Serious: Yes (Other)
  Sender: FDA-Public Use
  Company Number: A03200400502

PATIENT
  Age: 72 Year
  Sex: Male
  Weight: 83.0083 kg

DRUGS (5)
  1. PLAVIX [Suspect]
     Indication: TRANSIENT ISCHAEMIC ATTACK
     Dosage: 75 MG QD - ORAL
     Route: 048
     Dates: start: 20030101, end: 20031007
  2. COUMADIN [Suspect]
     Dosage: 5 MG QD - ORAL
     Route: 048
     Dates: start: 19990212
  3. ATORVASTATIN CALCIUM [Concomitant]
  4. AMLODIPINE BESYLATE [Concomitant]
  5. MUCOSYTE [Concomitant]

REACTIONS (3)
  - CEREBROVASCULAR ACCIDENT [None]
  - DIPLOPIA [None]
  - THROMBOCYTOPENIC PURPURA [None]
